FAERS Safety Report 16910428 (Version 1)
Quarter: 2019Q4

REPORT INFORMATION
  Report Type: Spontaneous
  Country: US (occurrence: US)
  Receive Date: 20191011
  Receipt Date: 20191011
  Transmission Date: 20200122
  Serious: No
  Sender: FDA-Public Use
  Company Number: US-GLAXOSMITHKLINE-US2019181693

PATIENT
  Age: 80 Year
  Sex: Male

DRUGS (1)
  1. BREO ELLIPTA [Suspect]
     Active Substance: FLUTICASONE FUROATE\VILANTEROL TRIFENATATE
     Indication: CHRONIC OBSTRUCTIVE PULMONARY DISEASE
     Dosage: 1 PUFF(S), QD
     Route: 055
     Dates: start: 2017

REACTIONS (5)
  - Pain [Recovering/Resolving]
  - Product dose omission [Unknown]
  - Heart rate irregular [Recovering/Resolving]
  - Overdose [Unknown]
  - Tinnitus [Recovering/Resolving]

NARRATIVE: CASE EVENT DATE: 201908
